FAERS Safety Report 10762534 (Version 1)
Quarter: 2015Q1

REPORT INFORMATION
  Report Type: Spontaneous
  Country: US (occurrence: US)
  Receive Date: 20150204
  Receipt Date: 20150204
  Transmission Date: 20150721
  Serious: Yes (Hospitalization, Other)
  Sender: FDA-Public Use
  Company Number: US-AMGEN-USASP2015008479

PATIENT

DRUGS (1)
  1. ENBREL [Suspect]
     Active Substance: ETANERCEPT
     Indication: EXPOSURE DURING PREGNANCY
     Dosage: UNK UNK, 2 TIMES/WK
     Route: 065
     Dates: start: 20130201, end: 201309

REACTIONS (1)
  - Foetal heart rate abnormal [Recovered/Resolved]

NARRATIVE: CASE EVENT DATE: 2014
